FAERS Safety Report 16569902 (Version 1)
Quarter: 2019Q3

REPORT INFORMATION
  Report Type: Spontaneous
  Country: DE (occurrence: DE)
  Receive Date: 20190715
  Receipt Date: 20190715
  Transmission Date: 20191004
  Serious: Yes (Hospitalization)
  Sender: FDA-Public Use
  Company Number: DE-TEVA-2019-DE-1076492

PATIENT
  Age: 58 Year
  Sex: Male
  Weight: 65 kg

DRUGS (7)
  1. AUGMENTAN [Concomitant]
     Active Substance: AMOXICILLIN\CLAVULANATE POTASSIUM
     Dosage: TABLET
     Route: 048
  2. LODOTRA [Concomitant]
     Active Substance: PREDNISONE
     Dosage: 2 MG, 0-0-1, TABLET
     Route: 048
  3. EUTHYROX [Concomitant]
     Active Substance: LEVOTHYROXINE SODIUM
     Dosage: 50 ?G, 1-0-0, TABLET
     Route: 048
  4. BISOPROLOL [Concomitant]
     Active Substance: BISOPROLOL
     Dosage: 2.5 MG, 1/2-0-0, TABLET
     Route: 048
  5. CEFUROXIM [Concomitant]
     Active Substance: CEFUROXIME
     Dosage: TABLET
     Route: 048
  6. MTX [Suspect]
     Active Substance: METHOTREXATE SODIUM
     Dosage: 15 MG, 1 / WEEK. LAST 04.05.2017, SOLUTION FOR INJECTION / INFUSION
     Route: 058
  7. RAMIPRIL. [Concomitant]
     Active Substance: RAMIPRIL
     Dosage: 5 MG, 1-0-0, TABLET
     Route: 048

REACTIONS (5)
  - Pyrexia [Unknown]
  - Musculoskeletal discomfort [Unknown]
  - Rash macular [Unknown]
  - Nasopharyngitis [Unknown]
  - Cough [Unknown]
